FAERS Safety Report 8586558-X (Version None)
Quarter: 2012Q3

REPORT INFORMATION
  Report Type: 
  Country: None (occurrence: None)
  Receive Date: 20120810
  Receipt Date: 20120803
  Transmission Date: 20120928
  Serious: Yes (Other)
  Sender: FDA-Public Use
  Company Number: US-JNJFOC-20120700059

PATIENT
  Age: 55 Year
  Sex: Female
  Weight: 49.9 kg

DRUGS (5)
  1. LOVAZA [Concomitant]
     Indication: ROUTINE HEALTH MAINTENANCE
     Route: 065
  2. BENADRYL [Suspect]
     Indication: DERMATITIS CONTACT
     Route: 048
     Dates: start: 19780101
  3. BENADRYL [Suspect]
     Indication: PRURITUS
     Route: 048
     Dates: start: 19780101
  4. CLONIDINE [Concomitant]
     Indication: HYPERTENSION
     Route: 065
  5. EPIPEN [Concomitant]
     Indication: HYPERSENSITIVITY
     Route: 065

REACTIONS (2)
  - ANAPHYLACTIC REACTION [None]
  - OFF LABEL USE [None]
